FAERS Safety Report 23111564 (Version 2)
Quarter: 2023Q4

REPORT INFORMATION
  Report Type: Spontaneous
  Country: US (occurrence: US)
  Receive Date: 20231026
  Receipt Date: 20231106
  Transmission Date: 20240110
  Serious: Yes (Other)
  Sender: FDA-Public Use
  Company Number: US-TEVA-2023-US-2937285

PATIENT
  Age: 37 Year
  Sex: Female

DRUGS (17)
  1. BUPRENORPHINE\NALOXONE [Suspect]
     Active Substance: BUPRENORPHINE\NALOXONE
     Indication: Pelvic pain
     Dosage: 2-0.5 MG- 1/4 MICROFILM (WEEK 1)
     Route: 060
  2. BUPRENORPHINE\NALOXONE [Suspect]
     Active Substance: BUPRENORPHINE\NALOXONE
     Dosage: 2-0.5 MG- 1/4 MICROFILM (WEEK 2)- 3 TIMES DAILY
     Route: 060
  3. BUPRENORPHINE [Suspect]
     Active Substance: BUPRENORPHINE
     Indication: Pelvic pain
     Dosage: 1 DOSAGE FORMS DAILY; WEEK 3 , 0.5 DF TWICE A DAY , BUPRENORPHINE: 2 MG
     Route: 060
  4. BUPRENORPHINE [Suspect]
     Active Substance: BUPRENORPHINE
     Dosage: 2 DOSAGE FORMS DAILY; WITH NOON 1/2 TABLET FOR 4 DAYS OF WEEK 4 , 1 DF TWICE A DAY
     Route: 060
  5. BUPRENORPHINE [Suspect]
     Active Substance: BUPRENORPHINE
     Dosage: 3 DOSAGE FORMS DAILY; 3 TIMES DAILY FOR REMAINING 3 DAYS OF WEEK 4
     Route: 060
  6. BUPRENORPHINE [Suspect]
     Active Substance: BUPRENORPHINE
     Dosage: 3 TIMES DAILY- WEEK 5 AND WEEK 6 (WITH 1/2 TABLET DAILY AS NEEDED)
     Route: 060
  7. BUPRENORPHINE [Suspect]
     Active Substance: BUPRENORPHINE
     Dosage: 10 MILLIGRAM DAILY; DOSE WAS INCREASED TO 10 MG/DAY IN DIVIDED DOSES (AT 28 WEEKS OF GESTATION) AND
     Route: 060
  8. MORPHINE SULFATE [Suspect]
     Active Substance: MORPHINE SULFATE
     Indication: Pelvic pain
     Dosage: 30 MILLIGRAM DAILY; EXTENDED RELEASE- WEEK 1 , CONTROLLED RELEASE , 15 MG TWICE A DAY
     Route: 048
  9. MORPHINE SULFATE [Suspect]
     Active Substance: MORPHINE SULFATE
     Dosage: 15 MILLIGRAM DAILY; EXTENDED RELEASE- WEEK 2 AT NIGHT , ONCE A DAY , ADDITIONAL INFO: ACTION TAKEN:
     Route: 048
  10. OXYCODONE [Suspect]
     Active Substance: OXYCODONE
     Indication: Pelvic pain
     Dosage: 6 DOSAGE FORMS DAILY; WEEK-1 AND 2 , ONCE A DAY , OXYCODONE: 10 MG
     Route: 065
  11. OXYCODONE [Suspect]
     Active Substance: OXYCODONE
     Dosage: 5.5 DOSAGE FORMS DAILY; FOR 4 DAYS OF WEEK 3 , ONCE A DAY
     Route: 065
  12. OXYCODONE [Suspect]
     Active Substance: OXYCODONE
     Dosage: 5 DOSAGE FORMS DAILY; FOR REMAINING 3 DAYS OF WEEK 3 , ONCE A DAY
     Route: 065
  13. OXYCODONE [Suspect]
     Active Substance: OXYCODONE
     Dosage: 4 DOSAGE FORMS DAILY; FOR 4 DAYS OF WEEK 4 , ONCE A DAY
     Route: 065
  14. OXYCODONE [Suspect]
     Active Substance: OXYCODONE
     Dosage: 3 DOSAGE FORMS DAILY; FOR REMAINING 3 DAYS OF WEEK 4 , ONCE A DAY
     Route: 065
  15. OXYCODONE [Suspect]
     Active Substance: OXYCODONE
     Dosage: 2.5 DOSAGE FORMS DAILY; FOR 4 DAYS OF WEEK 5 , ONCE A DAY
     Route: 065
  16. OXYCODONE [Suspect]
     Active Substance: OXYCODONE
     Dosage: 2 DOSAGE FORMS DAILY; FOR REMAINING 3 DAYS OF WEEK 5 , ONCE A DAY
     Route: 065
  17. OXYCODONE [Suspect]
     Active Substance: OXYCODONE
     Dosage: 1 DOSAGE FORMS DAILY; FOR 4 DAYS OF WEEK 6 FOLLOWED BY ITS DISCONTINUATION , ONCE A DAY
     Route: 065

REACTIONS (8)
  - Rebound effect [Unknown]
  - Arthralgia [Recovered/Resolved]
  - Back pain [Recovered/Resolved]
  - Dysstasia [Recovered/Resolved]
  - Gait disturbance [Recovered/Resolved]
  - Off label use [Unknown]
  - Maternal exposure during pregnancy [Unknown]
  - Normal newborn [Unknown]
